FAERS Safety Report 11339705 (Version 1)
Quarter: 2015Q3

REPORT INFORMATION
  Report Type: Spontaneous
  Country: FR (occurrence: FR)
  Receive Date: 20150805
  Receipt Date: 20150805
  Transmission Date: 20151125
  Serious: Yes (Life-Threatening, Other)
  Sender: FDA-Public Use
  Company Number: FR-ASTRAZENECA-2015SE75028

PATIENT
  Sex: Female

DRUGS (5)
  1. XEROQUEL [Suspect]
     Active Substance: QUETIAPINE FUMARATE
     Route: 048
  2. ZOPICLONE [Concomitant]
     Active Substance: ZOPICLONE
     Dosage: ONE TABLET IN THE EVENING.
  3. TERCIAN [Suspect]
     Active Substance: CYAMEMAZINE
     Route: 030
     Dates: start: 20150511, end: 20150511
  4. SEROPLEX [Concomitant]
     Active Substance: ESCITALOPRAM OXALATE
  5. TEMESTA [Concomitant]
     Active Substance: LORAZEPAM

REACTIONS (7)
  - Disseminated intravascular coagulation [Unknown]
  - Off label use [Not Recovered/Not Resolved]
  - Pneumothorax [Unknown]
  - Shock haemorrhagic [Unknown]
  - Catheter site haematoma [Unknown]
  - Haemothorax [Unknown]
  - Neuroleptic malignant syndrome [Recovered/Resolved]

NARRATIVE: CASE EVENT DATE: 20150512
